FAERS Safety Report 17440930 (Version 2)
Quarter: 2020Q2

REPORT INFORMATION
  Report Type: Spontaneous
  Country: US (occurrence: US)
  Receive Date: 20200220
  Receipt Date: 20200410
  Transmission Date: 20200713
  Serious: Yes (Other)
  Sender: FDA-Public Use
  Company Number: US-BAYER-2020-030398

PATIENT
  Age: 22 Year
  Sex: Female
  Weight: 97.51 kg

DRUGS (3)
  1. CYTOTEC [Concomitant]
     Active Substance: MISOPROSTOL
     Dosage: 2 DF, BID
     Route: 048
     Dates: start: 20200211, end: 20200212
  2. SKYLA [Suspect]
     Active Substance: LEVONORGESTREL
     Indication: CONTRACEPTION
     Dosage: 14 ?G PER DAY CONTINUOUSLY
     Route: 015
     Dates: end: 20200120
  3. SKYLA [Suspect]
     Active Substance: LEVONORGESTREL
     Indication: CONTRACEPTION
     Dosage: 14 ?G PER DAY CONTINUOUSLY
     Route: 015
     Dates: start: 20200120

REACTIONS (9)
  - Device expulsion [Not Recovered/Not Resolved]
  - Vaginitis chlamydial [None]
  - Metrorrhagia [None]
  - Contraindicated device used [None]
  - Complication of device insertion [Recovered/Resolved]
  - Syncope [Recovered/Resolved]
  - Vaginal discharge [None]
  - Procedural pain [Recovered/Resolved]
  - Vulvovaginal mycotic infection [None]

NARRATIVE: CASE EVENT DATE: 2020
